FAERS Safety Report 10368570 (Version 1)
Quarter: 2014Q1

REPORT INFORMATION
  Report Type: Spontaneous
  Country: US (occurrence: None)
  Receive Date: 20140306
  Receipt Date: 20140306
  Transmission Date: 20141002
  Serious: Yes (Hospitalization, Other)
  Sender: FDA-Public Use
  Company Number: 163-21880-13071671

PATIENT
  Age: 67 Year
  Sex: Male

DRUGS (21)
  1. REVLIMID (LENALIDOMIDE) (CAPSULES) [Suspect]
     Indication: PLASMA CELL MYELOMA
     Dosage: 10 MG, 14 IN 14 D, PO
     Route: 048
     Dates: start: 20130504
  2. TRAMADOL HCL (TRAMADOL HYDROCHLORIDE) [Concomitant]
  3. FENTANYL (FENTANYL) [Concomitant]
  4. PROMETHAZINE (PROMETHAZINE) [Concomitant]
  5. LISINOPRIL (LISINOPRIL) [Concomitant]
  6. METHOCARBAMOL (METHOCARBAMOL) [Concomitant]
  7. CRESTOR (ROSUVASTATIN) [Concomitant]
  8. HYDROMORPHONE (HYDROMORPHONE) [Concomitant]
  9. BYSTOLIC (NEBIVOLOL HYDROCHLORIDE) [Concomitant]
  10. MEPHTON (PHYTOMENADIONE) [Concomitant]
  11. DEXAMETHASONE (DEXAMETHASONE) [Concomitant]
  12. HYDRALAZINE (HYDRALAZINE) [Concomitant]
  13. NEXIUM (ESOMEPRAZOLE) [Concomitant]
  14. KLOR-CON (POTASSIUM CHLORIDE) [Concomitant]
  15. LEVOTHYROXINE (LEVOTHYROXINE) [Concomitant]
  16. MAGNESIUM (MAGNESIUM) [Concomitant]
  17. ALDACTONE (SPIRONOLACATONE) [Concomitant]
  18. PRAVASTATIN SODIUM (PRAVASATIN SODIUM) [Concomitant]
  19. AMOXICILLIN (AMOXICILLIN) [Concomitant]
  20. LEVOFLOXACIN (LEVOFLOXACIN) [Concomitant]
  21. SODIUM BICARBONATE (SODIUM BICARBONATE) [Concomitant]

REACTIONS (1)
  - Thrombosis [None]
